FAERS Safety Report 14500039 (Version 1)
Quarter: 2018Q1

REPORT INFORMATION
  Report Type: Not Available
  Country: US (occurrence: US)
  Receive Date: 20180207
  Receipt Date: 20180207
  Transmission Date: 20180509
  Serious: No
  Sender: FDA-Public Use
  Company Number: US-FOUNDATIONCONSUMERHC-2017-US-013787

PATIENT
  Age: 22 Year
  Sex: Female

DRUGS (1)
  1. PLAN B ONE-STEP [Suspect]
     Active Substance: LEVONORGESTREL
     Dosage: 1 TAB PO 10/17/2017 + 1 TAB PO 10/21/2017
     Route: 048
     Dates: start: 20171017, end: 20171021

REACTIONS (2)
  - Vaginal haemorrhage [Recovered/Resolved]
  - Menstrual disorder [Unknown]

NARRATIVE: CASE EVENT DATE: 20171018
